FAERS Safety Report 11886402 (Version 2)
Quarter: 2016Q1

REPORT INFORMATION
  Report Type: Spontaneous
  Country: US (occurrence: US)
  Receive Date: 20160104
  Receipt Date: 20160321
  Transmission Date: 20160526
  Serious: Yes (Hospitalization, Other)
  Sender: FDA-Public Use
  Company Number: US-PFIZER INC-2015474078

PATIENT
  Age: 72 Year
  Sex: Female

DRUGS (35)
  1. AROMASIN [Suspect]
     Active Substance: EXEMESTANE
     Indication: BREAST CANCER
     Dosage: 25 MG, DAILY
     Route: 048
     Dates: start: 201204
  2. EXEMESTANE. [Suspect]
     Active Substance: EXEMESTANE
     Indication: BREAST CANCER
     Dosage: 25 MG, DAILY
     Route: 048
     Dates: start: 2014
  3. FLONASE /00908302/ [Concomitant]
     Active Substance: MOMETASONE FUROATE
     Dosage: 50 UG, DAILY
     Route: 045
     Dates: start: 2014
  4. RED YEAST RICE [Concomitant]
     Active Substance: DIETARY SUPPLEMENT
     Dosage: 600 MG, UNK
     Route: 048
     Dates: start: 2014, end: 201508
  5. BENADRYL [Concomitant]
     Active Substance: DIPHENHYDRAMINE HYDROCHLORIDE
     Dosage: 25 MG, (SHORT OVER 15 MINUTES FOR 1 DAY IN NS 50 ML )
     Route: 042
     Dates: start: 20150629, end: 20150629
  6. RED BLOOD CELLS [Concomitant]
     Active Substance: HUMAN RED BLOOD CELL
     Dosage: UNK (1 UNITS INTRAVENOUS DAILY SHORT OVER 2 HOURS FOR 1 DAY )
     Route: 042
     Dates: start: 20150629, end: 20150629
  7. VITAMIN C [Concomitant]
     Active Substance: ASCORBIC ACID
     Dosage: 150 MG, DAILY
     Route: 048
     Dates: start: 2014, end: 20140626
  8. OMEPRAZOLE. [Concomitant]
     Active Substance: OMEPRAZOLE
     Dosage: 20 MG, DAILY
     Route: 048
     Dates: start: 2014
  9. MONTELUKAST /01362602/ [Concomitant]
     Dosage: 10 MG, DAILY
     Route: 048
     Dates: start: 2014
  10. CHONDROITIN/GLUCOSAMINE [Concomitant]
     Dosage: 1500 UNK, DAILY
     Route: 048
     Dates: start: 2014, end: 201508
  11. RESVERATROL [Concomitant]
     Active Substance: RESVERATROL
     Dosage: UNK (100-100 MG)
     Route: 048
     Dates: start: 2014, end: 201508
  12. NORTRIPTYLINE HCL [Concomitant]
     Active Substance: NORTRIPTYLINE HYDROCHLORIDE
     Dosage: UNK
     Dates: start: 2015
  13. DORZOLAMIDE [Concomitant]
     Active Substance: DORZOLAMIDE
     Dosage: UNK
  14. TRAMADOL HCL [Concomitant]
     Active Substance: TRAMADOL HYDROCHLORIDE
     Dosage: 50 MG, AS NEEDED
     Route: 048
     Dates: start: 201506
  15. AMLODIPINE BESYLATE. [Concomitant]
     Active Substance: AMLODIPINE BESYLATE
     Dosage: 10 MG, DAILY
     Route: 048
     Dates: start: 2014
  16. SUPER OMEGA-3 [Concomitant]
     Dosage: 1 DF, UNK
     Route: 048
     Dates: start: 2014
  17. BUPROPION HCL ER [Concomitant]
     Active Substance: BUPROPION HYDROCHLORIDE
     Dosage: 150 MG, DAILY
     Route: 048
     Dates: start: 2014, end: 201502
  18. LATANOPROST. [Concomitant]
     Active Substance: LATANOPROST
     Dosage: UNK UNK, DAILY
     Route: 047
     Dates: start: 2014
  19. BUPROPION HCL ER [Concomitant]
     Active Substance: BUPROPION HYDROCHLORIDE
     Dosage: UNK
     Dates: end: 2013
  20. NORTRIPTYLINE HCL [Concomitant]
     Active Substance: NORTRIPTYLINE HYDROCHLORIDE
     Dosage: 10 MG, DAILY
     Route: 048
     Dates: start: 2014
  21. GENTLE IRON [Concomitant]
     Dosage: UNK
     Route: 048
     Dates: start: 2015
  22. MAGNESIUM [Concomitant]
     Active Substance: MAGNESIUM
     Dosage: 400 , DAILY
     Route: 048
     Dates: start: 2014
  23. VITAMIN D3 [Concomitant]
     Active Substance: CHOLECALCIFEROL
     Dosage: UNK, AS NEEDED
     Route: 048
     Dates: start: 2014
  24. AZELASTINE HCL [Concomitant]
     Active Substance: AZELASTINE HYDROCHLORIDE
     Dosage: UNK
     Route: 047
     Dates: start: 2015
  25. CREON [Concomitant]
     Active Substance: PANCRELIPASE AMYLASE\PANCRELIPASE LIPASE\PANCRELIPASE PROTEASE
     Route: 048
  26. DULERA [Concomitant]
     Active Substance: FORMOTEROL FUMARATE DIHYDRATE\MOMETASONE FUROATE
     Dosage: UNK, AS NEEDED
     Route: 045
     Dates: start: 2014, end: 20150819
  27. STOOL SOFTENER [Concomitant]
     Active Substance: DOCUSATE CALCIUM
     Dosage: UNK
     Route: 048
  28. TENEX [Concomitant]
     Active Substance: GUANFACINE HYDROCHLORIDE
     Dosage: UNK, AS NEEDED
     Route: 048
     Dates: start: 201506
  29. WARFARIN [Concomitant]
     Active Substance: WARFARIN
     Dosage: 2 MG, UNK
     Dates: start: 201601
  30. MULTIVITAMINS [Concomitant]
     Active Substance: VITAMINS
     Dosage: 1 DF, DAILY
     Route: 048
     Dates: start: 2014, end: 20150626
  31. LATANOPROST. [Concomitant]
     Active Substance: LATANOPROST
     Dosage: UNK
     Dates: start: 2012
  32. POTASSIUM CHLORIDE. [Concomitant]
     Active Substance: POTASSIUM CHLORIDE
     Dosage: UNK, DAILY
     Route: 048
     Dates: start: 2014, end: 20150811
  33. CALCIUM CARBONATE W/MAGNESIUM CARBONATE [Concomitant]
     Dosage: 1 DF, DAILY
     Route: 048
     Dates: start: 2014, end: 201512
  34. COQ 10 [Concomitant]
     Active Substance: UBIDECARENONE
     Dosage: 1 DF, DAILY
     Route: 048
     Dates: start: 2014, end: 201508
  35. ACETAMINOPHEN. [Concomitant]
     Active Substance: ACETAMINOPHEN
     Dosage: 650 MG, UNK
     Route: 048
     Dates: start: 20150629, end: 20150629

REACTIONS (4)
  - Renal failure [Not Recovered/Not Resolved]
  - Breast angiosarcoma [Not Recovered/Not Resolved]
  - Pancreatic carcinoma [Not Recovered/Not Resolved]
  - Second primary malignancy [Not Recovered/Not Resolved]

NARRATIVE: CASE EVENT DATE: 201504
